FAERS Safety Report 13343398 (Version 1)
Quarter: 2017Q1

REPORT INFORMATION
  Report Type: Spontaneous
  Country: CN (occurrence: CN)
  Receive Date: 20170316
  Receipt Date: 20170316
  Transmission Date: 20170428
  Serious: Yes (Hospitalization, Disabling)
  Sender: FDA-Public Use
  Company Number: CN-BAYER-2017-045059

PATIENT
  Age: 76 Year
  Sex: Female
  Weight: 46 kg

DRUGS (10)
  1. SIMVASTATIN. [Suspect]
     Active Substance: SIMVASTATIN
     Indication: HYPERLIPIDAEMIA
     Dosage: 20 MG, QD
     Route: 048
     Dates: start: 20161221, end: 20161226
  2. SIMVASTATIN. [Suspect]
     Active Substance: SIMVASTATIN
     Indication: DIABETES MELLITUS
  3. BAYASPIRIN 100 MG [Suspect]
     Active Substance: ASPIRIN
     Indication: PROPHYLAXIS
     Dosage: 100 MG, QD
     Route: 048
     Dates: start: 20161221, end: 20161226
  4. EPALRESTAT [Suspect]
     Active Substance: EPALRESTAT
     Indication: NUTRITIONAL SUPPLEMENTATION
     Dosage: 50 MG, TID
     Route: 048
     Dates: start: 20161221, end: 20161225
  5. SIMVASTATIN. [Suspect]
     Active Substance: SIMVASTATIN
     Indication: DIABETIC NEPHROPATHY
  6. SIMVASTATIN. [Suspect]
     Active Substance: SIMVASTATIN
     Indication: DIABETIC NEUROPATHY
  7. EPALRESTAT [Suspect]
     Active Substance: EPALRESTAT
     Indication: DIABETIC NEPHROPATHY
  8. EPALRESTAT [Suspect]
     Active Substance: EPALRESTAT
     Indication: DIABETIC NEUROPATHY
  9. EPALRESTAT [Suspect]
     Active Substance: EPALRESTAT
     Indication: DIABETES MELLITUS
  10. BAYASPIRIN 100 MG [Suspect]
     Active Substance: ASPIRIN
     Indication: CEREBRAL INFARCTION

REACTIONS (4)
  - Nausea [Unknown]
  - Vomiting [Unknown]
  - Jaundice [Recovering/Resolving]
  - Hepatic function abnormal [Unknown]

NARRATIVE: CASE EVENT DATE: 20161224
